FAERS Safety Report 6589433-5 (Version None)
Quarter: 2010Q1

REPORT INFORMATION
  Report Type: 
  Country: None (occurrence: None)
  Receive Date: 20100212
  Receipt Date: 20100204
  Transmission Date: 20100710
  Serious: Yes (Hospitalization)
  Sender: FDA-Public Use
  Company Number: 2010JP000760

PATIENT
  Age: 85 Year
  Sex: Female

DRUGS (1)
  1. VESICARE [Suspect]
     Dosage: ORAL
     Route: 048
     Dates: start: 20091201

REACTIONS (3)
  - AGRANULOCYTOSIS [None]
  - INFLAMMATION [None]
  - WHITE BLOOD CELL COUNT DECREASED [None]
